FAERS Safety Report 13395845 (Version 1)
Quarter: 2017Q2

REPORT INFORMATION
  Report Type: Spontaneous
  Country: US (occurrence: US)
  Receive Date: 20170403
  Receipt Date: 20170403
  Transmission Date: 20170830
  Serious: Yes (Hospitalization, Other)
  Sender: FDA-Public Use
  Company Number: US-TEVA-755244USA

PATIENT
  Age: 68 Year
  Sex: Female

DRUGS (1)
  1. MEPERIDINE HYDROCHLORIDE. [Suspect]
     Active Substance: MEPERIDINE HYDROCHLORIDE
     Route: 065

REACTIONS (9)
  - Feeling cold [Unknown]
  - Vomiting [Unknown]
  - Feeling hot [Unknown]
  - Nausea [Unknown]
  - Loss of consciousness [Unknown]
  - Dry skin [Unknown]
  - Malaise [Unknown]
  - Withdrawal syndrome [Unknown]
  - Muscle contractions involuntary [Unknown]

NARRATIVE: CASE EVENT DATE: 20170124
